FAERS Safety Report 5594873-7 (Version None)
Quarter: 2007Q4

REPORT INFORMATION
  Report Type: 
  Country: None (occurrence: None)
  Receive Date: 20071218
  Receipt Date: 20070712
  Transmission Date: 20080405
  Serious: Yes (Hospitalization)
  Sender: FDA-Public Use
  Company Number: 2007031661

PATIENT
  Age: 59 Year
  Sex: Male
  Weight: 77.1 kg

DRUGS (3)
  1. BEXTRA [Suspect]
     Dosage: ORAL
     Route: 048
     Dates: start: 20021022, end: 20030817
  2. VIOXX [Suspect]
     Indication: ARTHRALGIA
     Dosage: ORAL
     Route: 048
     Dates: start: 19990601, end: 20030301
  3. VIOXX [Suspect]
     Indication: BACK PAIN
     Dosage: ORAL
     Route: 048
     Dates: start: 19990601, end: 20030301

REACTIONS (1)
  - MYOCARDIAL INFARCTION [None]
